FAERS Safety Report 6694657-2 (Version None)
Quarter: 2010Q2

REPORT INFORMATION
  Report Type: 
  Country: None (occurrence: None)
  Receive Date: 20100423
  Receipt Date: 20100415
  Transmission Date: 20101027
  Serious: Yes (Other)
  Sender: FDA-Public Use
  Company Number: GXKR2010TR04300

PATIENT
  Age: 20 Year
  Sex: Female

DRUGS (2)
  1. VALPROIC ACID (NGX) [Suspect]
     Indication: EPILEPSY
     Route: 065
  2. CARBAMAZEPINE (NGX) [Suspect]
     Indication: EPILEPSY
     Route: 065

REACTIONS (2)
  - CAESAREAN SECTION [None]
  - DRUG EXPOSURE DURING PREGNANCY [None]
